FAERS Safety Report 25700231 (Version 1)
Quarter: 2025Q3

REPORT INFORMATION
  Report Type: Spontaneous
  Country: US (occurrence: US)
  Receive Date: 20250819
  Receipt Date: 20250819
  Transmission Date: 20251021
  Serious: No
  Sender: ARCUTIS
  Company Number: US-ARCUTIS BIOTHERAPEUTICS INC-2025AER000540

PATIENT

DRUGS (5)
  1. ZORYVE [Suspect]
     Active Substance: ROFLUMILAST
     Indication: Eczema
     Route: 061
     Dates: start: 20250617, end: 202506
  2. ZORYVE [Suspect]
     Active Substance: ROFLUMILAST
     Route: 061
     Dates: start: 20250623
  3. ZORYVE [Suspect]
     Active Substance: ROFLUMILAST
     Indication: Eczema
     Route: 061
     Dates: start: 20250619, end: 20250620
  4. KETOCONAZOLE [Concomitant]
     Active Substance: KETOCONAZOLE
     Indication: Autoimmune disorder
  5. PLAQUENIL [Concomitant]
     Active Substance: HYDROXYCHLOROQUINE SULFATE
     Indication: Autoimmune disorder

REACTIONS (3)
  - Nausea [Recovered/Resolved]
  - Diarrhoea [Recovered/Resolved]
  - Off label use [Unknown]

NARRATIVE: CASE EVENT DATE: 20250617
